FAERS Safety Report 10897695 (Version 1)
Quarter: 2015Q1

REPORT INFORMATION
  Report Type: Spontaneous
  Country: GB (occurrence: GB)
  Receive Date: 20150309
  Receipt Date: 20150309
  Transmission Date: 20150721
  Serious: Yes (Other)
  Sender: FDA-Public Use
  Company Number: GB-PFIZER INC-2015082048

PATIENT
  Age: 28 Year
  Sex: Female
  Weight: 70 kg

DRUGS (1)
  1. CHAMPIX [Suspect]
     Active Substance: VARENICLINE TARTRATE
     Dosage: UNK

REACTIONS (11)
  - Psychomotor hyperactivity [Unknown]
  - Hallucination, auditory [Unknown]
  - Acute psychosis [Unknown]
  - Tearfulness [Unknown]
  - Suspiciousness [Unknown]
  - Mental impairment [Unknown]
  - Anxiety [Unknown]
  - Screaming [Unknown]
  - Abnormal behaviour [Unknown]
  - Paranoia [Unknown]
  - Poor quality sleep [Unknown]

NARRATIVE: CASE EVENT DATE: 2012
